FAERS Safety Report 13251209 (Version 2)
Quarter: 2017Q1

REPORT INFORMATION
  Report Type: Other
  Country: US (occurrence: US)
  Receive Date: 20170220
  Receipt Date: 20170301
  Transmission Date: 20170428
  Serious: Yes (Death)
  Sender: FDA-Public Use
  Company Number: US-VELOXIS PHARMACEUTICALS-1063318

PATIENT

DRUGS (7)
  1. ENVARSUS XR [Suspect]
     Active Substance: TACROLIMUS
     Indication: GRAFT VERSUS HOST DISEASE
  2. VORINOSTAT [Concomitant]
     Active Substance: VORINOSTAT
  3. FLUDARABINE [Concomitant]
     Active Substance: FLUDARABINE PHOSPHATE
  4. BUSULFAN. [Concomitant]
     Active Substance: BUSULFAN
  5. DILANTIN [Concomitant]
     Active Substance: PHENYTOIN
  6. CLOFARABINE [Concomitant]
     Active Substance: CLOFARABINE
  7. METHOTREXATE (METHOTREXATE SODIUM) [Suspect]
     Active Substance: METHOTREXATE SODIUM

REACTIONS (3)
  - Adenovirus infection [Fatal]
  - Escherichia sepsis [Fatal]
  - Off label use [Unknown]
